FAERS Safety Report 20315056 (Version 1)
Quarter: 2022Q1

REPORT INFORMATION
  Report Type: Other
  Country: US (occurrence: None)
  Receive Date: 20220110
  Receipt Date: 20220110
  Transmission Date: 20220423
  Serious: No
  Sender: FDA-Public Use
  Company Number: US-ROCHE-2744420

PATIENT
  Age: 67 Year
  Sex: Female

DRUGS (11)
  1. RITUXIMAB [Suspect]
     Active Substance: RITUXIMAB
     Indication: Cryoglobulinaemia
     Route: 065
  2. RITUXIMAB [Suspect]
     Active Substance: RITUXIMAB
     Indication: Glomerulonephritis membranoproliferative
  3. TACROLIMUS [Concomitant]
     Active Substance: TACROLIMUS
  4. PREDNISONE [Concomitant]
     Active Substance: PREDNISONE
  5. MYCOPHENOLIC ACID [Concomitant]
     Active Substance: MYCOPHENOLIC ACID
  6. CYCLOPHOSPHAMIDE [Concomitant]
     Active Substance: CYCLOPHOSPHAMIDE
  7. AZATHIOPRINE [Concomitant]
     Active Substance: AZATHIOPRINE
  8. ENTECAVIR [Concomitant]
     Active Substance: ENTECAVIR
  9. BORTEZOMIB [Concomitant]
     Active Substance: BORTEZOMIB
     Indication: Monoclonal gammopathy
  10. DEXAMETHASONE [Concomitant]
     Active Substance: DEXAMETHASONE
     Indication: Monoclonal gammopathy
  11. CARFILZOMIB [Concomitant]
     Active Substance: CARFILZOMIB

REACTIONS (1)
  - Serum sickness [Unknown]
